FAERS Safety Report 13370815 (Version 2)
Quarter: 2017Q1

REPORT INFORMATION
  Report Type: Spontaneous
  Country: RU (occurrence: RU)
  Receive Date: 20170324
  Receipt Date: 20170329
  Transmission Date: 20170429
  Serious: Yes (Other)
  Sender: FDA-Public Use
  Company Number: RU-ASTRAZENECA-2017SE29487

PATIENT
  Age: 69 Year
  Sex: Male
  Weight: 85 kg

DRUGS (6)
  1. BRILINTA [Suspect]
     Active Substance: TICAGRELOR
     Indication: MYOCARDIAL INFARCTION
     Route: 048
     Dates: start: 20170213
  2. NIPERTEN [Concomitant]
  3. AMLODIPINE [Concomitant]
     Active Substance: AMLODIPINE BESYLATE
  4. CARDIOMAGNYL [Concomitant]
     Active Substance: ASPIRIN\MAGNESIUM HYDROXIDE
  5. LIPRIMAR [Concomitant]
     Active Substance: ATORVASTATIN CALCIUM
  6. PRESTARIUM [Concomitant]
     Active Substance: PERINDOPRIL

REACTIONS (1)
  - Coronary artery occlusion [Recovered/Resolved]
